FAERS Safety Report 7212875-1 (Version None)
Quarter: 2011Q1

REPORT INFORMATION
  Report Type: 
  Country: None (occurrence: None)
  Receive Date: 20110106
  Receipt Date: 20110105
  Transmission Date: 20110831
  Serious: Yes (Life-Threatening)
  Sender: FDA-Public Use
  Company Number: IT-JNJFOC-20101205425

PATIENT
  Age: 76 Year
  Sex: Male

DRUGS (12)
  1. NITRODUR II [Concomitant]
     Route: 062
  2. CLEXANE [Concomitant]
     Route: 065
  3. UNASYN [Suspect]
     Indication: PNEUMONIA BACTERIAL
     Route: 041
  4. BISOPROLOL [Concomitant]
     Route: 048
  5. ASPIRIN [Concomitant]
     Route: 048
  6. UNASYN [Suspect]
     Indication: PRODUCT USED FOR UNKNOWN INDICATION
     Route: 041
  7. FLUIMUCIL [Concomitant]
     Route: 048
  8. FERLIXIT [Concomitant]
     Route: 065
  9. LANSOPRAZOLE [Concomitant]
     Route: 048
  10. LEVEMIR [Concomitant]
     Route: 065
  11. TAVANIC [Suspect]
     Indication: PRODUCT USED FOR UNKNOWN INDICATION
     Route: 041
  12. TAVANIC [Suspect]
     Indication: PNEUMONIA BACTERIAL
     Route: 041

REACTIONS (3)
  - PERIORBITAL OEDEMA [None]
  - ERYTHEMA [None]
  - HYPERSENSITIVITY [None]
